FAERS Safety Report 5934997-5 (Version None)
Quarter: 2008Q4

REPORT INFORMATION
  Report Type: 
  Country: None (occurrence: None)
  Receive Date: 20081029
  Receipt Date: 20081029
  Transmission Date: 20090506
  Serious: Yes (Hospitalization, Other)
  Sender: FDA-Public Use
  Company Number: None

PATIENT
  Age: 32 Year
  Sex: Female
  Weight: 58.9676 kg

DRUGS (3)
  1. HYDROCODONE BITARTRATE [Suspect]
     Indication: HIP FRACTURE
     Dosage: 1 OT TWO EVERY 4-6 HRS
     Dates: start: 20080124, end: 20080202
  2. HYDROCODONE BITARTRATE [Suspect]
     Indication: ROTATOR CUFF SYNDROME
     Dosage: 1 OT TWO EVERY 4-6 HRS
     Dates: start: 20080124, end: 20080202
  3. LORCET-HD [Suspect]
     Indication: BACK PAIN
     Dosage: 1 EVERY EVERY 4-6 HRS
     Dates: start: 20080124, end: 20080124

REACTIONS (1)
  - DRUG HYPERSENSITIVITY [None]
